FAERS Safety Report 8339734-5 (Version None)
Quarter: 2012Q2

REPORT INFORMATION
  Report Type: 
  Country: None (occurrence: None)
  Receive Date: 20120507
  Receipt Date: 20120430
  Transmission Date: 20120825
  Serious: Yes (Other)
  Sender: FDA-Public Use
  Company Number: US-PFIZER INC-2012033155

PATIENT
  Sex: Male

DRUGS (9)
  1. TOPROL-XL [Concomitant]
     Dosage: 100 MG, 1X/DAY
  2. LOTREL [Concomitant]
     Dosage: 10/20MG QD
  3. SUTENT [Suspect]
     Dosage: 50 MG, 4 WEEKS ON - 2 WEEKS OFF
     Route: 048
     Dates: start: 20110825, end: 20120207
  4. ZOCOR [Concomitant]
     Dosage: 10 MG, 1X/DAY
  5. SUTENT [Suspect]
     Dosage: 37.5 MG, 1X/DAY
     Route: 048
     Dates: start: 20111214, end: 20120205
  6. SUTENT [Suspect]
     Indication: METASTATIC RENAL CELL CARCINOMA
     Dosage: 50 MG, 1X/DAY
     Route: 048
     Dates: start: 20111106, end: 20111125
  7. HERBAL PREPARATION [Concomitant]
     Dosage: 1 BID
  8. VENLAFAXINE [Concomitant]
     Dosage: 37.5 MG, 1X/DAY
     Route: 048
  9. PROTONIX [Concomitant]
     Dosage: 40 MG, 1X/DAY

REACTIONS (7)
  - SKIN HAEMORRHAGE [None]
  - LIP SWELLING [None]
  - DRUG HYPERSENSITIVITY [None]
  - SCRATCH [None]
  - URETHRAL HAEMORRHAGE [None]
  - PRURITUS [None]
  - RASH [None]
